FAERS Safety Report 24256328 (Version 1)
Quarter: 2024Q3

REPORT INFORMATION
  Report Type: Spontaneous
  Country: BR (occurrence: BR)
  Receive Date: 20240828
  Receipt Date: 20240828
  Transmission Date: 20241016
  Serious: Yes (Death, Hospitalization)
  Sender: STRIDES
  Company Number: BR-STRIDES ARCOLAB LIMITED-2024SP010707

PATIENT
  Age: 62 Year
  Sex: Male

DRUGS (2)
  1. PREDNISOLONE [Suspect]
     Active Substance: PREDNISOLONE
     Indication: Immunosuppressant drug therapy
     Dosage: UNK
     Route: 065
  2. PREDNISOLONE [Suspect]
     Active Substance: PREDNISOLONE
     Indication: Renal transplant

REACTIONS (4)
  - Eccrine carcinoma [Fatal]
  - Metastases to nervous system [Fatal]
  - Metastases to lung [Fatal]
  - Metastases to lymph nodes [Fatal]
